FAERS Safety Report 5868757-0 (Version None)
Quarter: 2008Q3

REPORT INFORMATION
  Report Type: 
  Country: None (occurrence: None)
  Receive Date: 20080902
  Receipt Date: 20080902
  Transmission Date: 20090109
  Serious: Yes (Other)
  Sender: FDA-Public Use
  Company Number: None

PATIENT
  Age: 48 Year
  Sex: Male
  Weight: 87.9978 kg

DRUGS (1)
  1. AVELOX [Suspect]
     Indication: LUNG INFECTION
     Dosage: 400MG 1 EACH DAY PO
     Route: 048
     Dates: start: 20080825, end: 20080825

REACTIONS (7)
  - ARTHRALGIA [None]
  - BACK PAIN [None]
  - FEELING ABNORMAL [None]
  - GROIN PAIN [None]
  - ILL-DEFINED DISORDER [None]
  - MUSCULAR WEAKNESS [None]
  - SCIATICA [None]
